FAERS Safety Report 8052571-4 (Version None)
Quarter: 2012Q1

REPORT INFORMATION
  Report Type: 
  Country: None (occurrence: None)
  Receive Date: 20120117
  Receipt Date: 20120117
  Transmission Date: 20120608
  Serious: Yes (Hospitalization)
  Sender: FDA-Public Use
  Company Number: None

PATIENT
  Age: 51 Year
  Sex: Male
  Weight: 119.6 kg

DRUGS (1)
  1. BACLOFEN [Suspect]
     Dosage: 10 MG AT BEDTIME PO
     Route: 048
     Dates: start: 20110809, end: 20110906

REACTIONS (4)
  - SWELLING FACE [None]
  - DIARRHOEA [None]
  - POLLAKIURIA [None]
  - PALPITATIONS [None]
